FAERS Safety Report 9423521 (Version 1)
Quarter: 2013Q3

REPORT INFORMATION
  Report Type: Spontaneous
  Country: US (occurrence: US)
  Receive Date: 20130724
  Receipt Date: 20130724
  Transmission Date: 20140515
  Serious: No
  Sender: FDA-Public Use
  Company Number: US-PFIZER INC-2013212385

PATIENT
  Age: 62 Year
  Sex: Female
  Weight: 55 kg

DRUGS (2)
  1. PREMPRO [Suspect]
     Indication: MENOPAUSE
     Dosage: 1 DF, 1X/DAY, 0.625/ 2.5 MG
     Route: 048
  2. LIPITOR [Concomitant]
     Dosage: UNK

REACTIONS (1)
  - Hypersensitivity [Unknown]
